FAERS Safety Report 8480597 (Version 2)
Quarter: 2013Q4

REPORT INFORMATION
  Report Type: Spontaneous
  Country: US (occurrence: US)
  Receive Date: 20120328
  Receipt Date: 20131001
  Transmission Date: 20140711
  Serious: Yes (Hospitalization)
  Sender: FDA-Public Use
  Company Number: US-GLAXOSMITHKLINE-A0894220A

PATIENT
  Age: 53 Year
  Sex: Male
  Weight: 73.2 kg

DRUGS (1)
  1. AVANDIA [Suspect]
     Indication: DIABETES MELLITUS
     Dosage: 8MG PER DAY
     Route: 048
     Dates: start: 2000, end: 20050506

REACTIONS (2)
  - Cerebrovascular accident [Unknown]
  - Cardiovascular disorder [Unknown]
